FAERS Safety Report 8434001-3 (Version None)
Quarter: 2012Q2

REPORT INFORMATION
  Report Type: 
  Country: None (occurrence: None)
  Receive Date: 20120323
  Receipt Date: 20110718
  Transmission Date: 20120825
  Serious: Yes (Hospitalization)
  Sender: FDA-Public Use
  Company Number: 163-21880-11072053

PATIENT
  Age: 72 Year
  Sex: Female

DRUGS (3)
  1. DEXAMETHASONE [Concomitant]
  2. REVLIMID [Suspect]
     Indication: MULTIPLE MYELOMA
     Dosage: 15 MG, X11, PO
     Route: 048
     Dates: start: 20110621
  3. RED BLOOD CELLS [Concomitant]

REACTIONS (2)
  - CONTUSION [None]
  - BLOOD CALCIUM DECREASED [None]
